FAERS Safety Report 20307654 (Version 4)
Quarter: 2022Q1

REPORT INFORMATION
  Report Type: Report from Study
  Country: DO (occurrence: DO)
  Receive Date: 20220107
  Receipt Date: 20220308
  Transmission Date: 20220424
  Serious: Yes (Other)
  Sender: FDA-Public Use
  Company Number: DO-NOVARTISPH-NVSC2022DO001671

PATIENT
  Age: 74 Year
  Sex: Male

DRUGS (3)
  1. EXFORGE [Suspect]
     Active Substance: AMLODIPINE BESYLATE\VALSARTAN
     Indication: Hypertension
     Dosage: 1 DOSAGE FORM, QD, 50/160 MG (MORE THAN 10 YEARS AGO)
     Route: 065
  2. METFORMIN HYDROCHLORIDE\VILDAGLIPTIN [Suspect]
     Active Substance: METFORMIN HYDROCHLORIDE\VILDAGLIPTIN
     Indication: Diabetes mellitus
     Dosage: 50/1000 MG, QD (STARTED APPROXIMATLY 3 YEARS AGO)
     Route: 065
     Dates: start: 2018
  3. VITAMINS NOS [Concomitant]
     Active Substance: VITAMINS
     Indication: Product used for unknown indication
     Dosage: UNK
     Route: 065

REACTIONS (5)
  - Hypoacusis [Unknown]
  - Thermal burn [Unknown]
  - Feeling of despair [Unknown]
  - Anger [Unknown]
  - Weight decreased [Unknown]

NARRATIVE: CASE EVENT DATE: 20211207
